FAERS Safety Report 17161774 (Version 1)
Quarter: 2019Q4

REPORT INFORMATION
  Report Type: Spontaneous
  Country: SE (occurrence: SE)
  Receive Date: 20191217
  Receipt Date: 20191217
  Transmission Date: 20200122
  Serious: Yes (Hospitalization)
  Sender: FDA-Public Use
  Company Number: SE-TEVA-2019-SE-1152681

PATIENT
  Age: 22 Year
  Sex: Female

DRUGS (4)
  1. STESOLID [Suspect]
     Active Substance: DIAZEPAM
     Route: 048
     Dates: start: 20190612, end: 20190612
  2. STILNOCT [Suspect]
     Active Substance: ZOLPIDEM TARTRATE
     Dosage: ^30 ST^
     Route: 048
     Dates: start: 20190612, end: 20190612
  3. XANOR [Suspect]
     Active Substance: ALPRAZOLAM
     Route: 048
     Dates: start: 20190612, end: 20190612
  4. LERGIGAN FORTE 50 MG FILMDRAGERAD TABLETT [Suspect]
     Active Substance: PROMETHAZINE HYDROCHLORIDE
     Dosage: ^TAKEN 100 100 ST LERGIGAN FORTE^
     Route: 048
     Dates: start: 20190612, end: 20190612

REACTIONS (4)
  - Loss of consciousness [Unknown]
  - Intentional overdose [Unknown]
  - Tachycardia [Unknown]
  - Intentional self-injury [Unknown]

NARRATIVE: CASE EVENT DATE: 20190612
